FAERS Safety Report 15867524 (Version 1)
Quarter: 2019Q1

REPORT INFORMATION
  Report Type: Report from Study
  Country: CA (occurrence: CA)
  Receive Date: 20190125
  Receipt Date: 20190125
  Transmission Date: 20190417
  Serious: Yes (Hospitalization, Other)
  Sender: FDA-Public Use
  Company Number: CA-JNJFOC-20181007665

PATIENT
  Sex: Female

DRUGS (1)
  1. SIMPONI [Suspect]
     Active Substance: GOLIMUMAB
     Indication: RHEUMATOID ARTHRITIS
     Dosage: STRENGTH = 50 MG
     Route: 058
     Dates: start: 20120727

REACTIONS (7)
  - Urinary tract infection [Unknown]
  - Monoparesis [Unknown]
  - Graft complication [Unknown]
  - Intervertebral disc protrusion [Unknown]
  - Procedural complication [Unknown]
  - Sepsis [Unknown]
  - Nerve compression [Unknown]

NARRATIVE: CASE EVENT DATE: 2018
